FAERS Safety Report 5786845-4 (Version None)
Quarter: 2008Q2

REPORT INFORMATION
  Report Type: 
  Country: None (occurrence: None)
  Receive Date: 20080620
  Receipt Date: 20080613
  Transmission Date: 20081010
  Serious: Yes (Disabling)
  Sender: FDA-Public Use
  Company Number: 163-21880-08020641

PATIENT
  Age: 64 Year
  Sex: Female
  Weight: 67.1324 kg

DRUGS (10)
  1. REVLIMID [Suspect]
     Indication: CYTOGENETIC ABNORMALITY
     Dosage: 25 MG, 1 IN 1 D, ORAL
     Route: 048
     Dates: start: 20080204, end: 20080214
  2. REVLIMID [Suspect]
     Indication: LYMPHOCYTIC LYMPHOMA
     Dosage: 25 MG, 1 IN 1 D, ORAL
     Route: 048
     Dates: start: 20080204, end: 20080214
  3. REVLIMID [Suspect]
     Indication: NON-HODGKIN'S LYMPHOMA
     Dosage: 25 MG, 1 IN 1 D, ORAL
     Route: 048
     Dates: start: 20080204, end: 20080214
  4. TOPROL-XL [Concomitant]
  5. CRESTOR [Concomitant]
  6. PREVACID [Concomitant]
  7. ESTROGEN (ESTROGEN NOS) [Concomitant]
  8. ASPIRIN [Concomitant]
  9. PROTONIX [Concomitant]
  10. IMMUNE GLOBULIN INTRAVENOUS (HUMAN) [Concomitant]

REACTIONS (2)
  - LYMPHADENITIS [None]
  - THROMBOCYTOPENIA [None]
